FAERS Safety Report 17734795 (Version 1)
Quarter: 2020Q2

REPORT INFORMATION
  Report Type: Spontaneous
  Country: CA (occurrence: CA)
  Receive Date: 20200501
  Receipt Date: 20200501
  Transmission Date: 20200714
  Serious: Yes (Other)
  Sender: FDA-Public Use
  Company Number: CA-PFIZER INC-2020176137

PATIENT
  Age: 65 Year
  Sex: Female

DRUGS (2)
  1. LYRICA [Concomitant]
     Active Substance: PREGABALIN
     Indication: PAIN
     Dosage: UNK
     Route: 065
  2. XELJANZ [Suspect]
     Active Substance: TOFACITINIB CITRATE
     Indication: RHEUMATOID ARTHRITIS
     Dosage: 5 MG, 2X/DAY
     Route: 048
     Dates: start: 20200319, end: 202004

REACTIONS (7)
  - Neuralgia [Unknown]
  - Atrial fibrillation [Unknown]
  - Herpes zoster [Unknown]
  - Back pain [Unknown]
  - Pain in extremity [Unknown]
  - Chronic sinusitis [Unknown]
  - Palpitations [Unknown]

NARRATIVE: CASE EVENT DATE: 202004
